APPROVED DRUG PRODUCT: METHYLPHENIDATE HYDROCHLORIDE
Active Ingredient: METHYLPHENIDATE HYDROCHLORIDE
Strength: 10MG
Dosage Form/Route: TABLET;ORAL
Application: A209276 | Product #002
Applicant: AUROLIFE PHARMA LLC
Approved: Oct 25, 2018 | RLD: No | RS: No | Type: DISCN